FAERS Safety Report 11495545 (Version 1)
Quarter: 2015Q3

REPORT INFORMATION
  Report Type: Spontaneous
  Country: US (occurrence: US)
  Receive Date: 20150911
  Receipt Date: 20150911
  Transmission Date: 20151125
  Serious: No
  Sender: FDA-Public Use
  Company Number: US-ROCHE-1009510

PATIENT
  Sex: Female

DRUGS (11)
  1. INCIVEK [Suspect]
     Active Substance: TELAPREVIR
     Indication: HEPATITIS C
     Dosage: IN DIVIDED DOSES
     Route: 065
     Dates: start: 20111011
  2. METFORMIN [Concomitant]
     Active Substance: METFORMIN HYDROCHLORIDE
  3. AMARYL [Concomitant]
     Active Substance: GLIMEPIRIDE
  4. PERCOCET [Concomitant]
     Active Substance: ACETAMINOPHEN\OXYCODONE HYDROCHLORIDE
  5. LASIX [Concomitant]
     Active Substance: FUROSEMIDE
  6. LANTUS [Concomitant]
     Active Substance: INSULIN GLARGINE
  7. ALDACTONE [Concomitant]
     Active Substance: SPIRONOLACTONE
  8. RIBAVIRIN. [Suspect]
     Active Substance: RIBAVIRIN
     Indication: HEPATITIS C
     Dosage: IN DIVIDED DOSES
     Route: 065
     Dates: start: 20111011
  9. LACTULOSE. [Concomitant]
     Active Substance: LACTULOSE
  10. NEXIUM [Concomitant]
     Active Substance: ESOMEPRAZOLE MAGNESIUM
  11. PEGASYS [Suspect]
     Active Substance: PEGINTERFERON ALFA-2A
     Indication: HEPATITIS C
     Dosage: IN DIVIDED DOSES
     Route: 065
     Dates: start: 20111011

REACTIONS (15)
  - Pyrexia [Unknown]
  - Decreased appetite [Unknown]
  - Vision blurred [Unknown]
  - Fatigue [Unknown]
  - Rash pruritic [Unknown]
  - Nausea [Unknown]
  - Pain [Unknown]
  - Stomatitis [Unknown]
  - Chills [Unknown]
  - Feeling abnormal [Unknown]
  - Insomnia [Unknown]
  - Tongue discolouration [Unknown]
  - Glossitis [Unknown]
  - Headache [Unknown]
  - Candida infection [Unknown]
